FAERS Safety Report 11529382 (Version 1)
Quarter: 2015Q3

REPORT INFORMATION
  Report Type: Spontaneous
  Country: PT (occurrence: PT)
  Receive Date: 20150921
  Receipt Date: 20150921
  Transmission Date: 20151125
  Serious: Yes (Hospitalization, Other)
  Sender: FDA-Public Use
  Company Number: PT-ALEMBIC PHARMACUETICALS LIMITED-2015SCAL000617

PATIENT
  Age: 37 Year
  Sex: Female

DRUGS (3)
  1. FOLIC ACID W/VITAMIN B12 [Concomitant]
     Indication: PRODUCT USED FOR UNKNOWN INDICATION
     Dosage: UNK
  2. CIPROFLOXACIN                      /00697203/ [Concomitant]
     Indication: ANTIBIOTIC PROPHYLAXIS
     Dosage: 400 MG, QD
  3. METRONIDAZOLE. [Suspect]
     Active Substance: METRONIDAZOLE
     Indication: ANTIBIOTIC PROPHYLAXIS
     Dosage: 1500 MG, QD

REACTIONS (2)
  - Cerebellar syndrome [Recovered/Resolved]
  - Axonal neuropathy [Not Recovered/Not Resolved]
